FAERS Safety Report 7999395-1 (Version None)
Quarter: 2011Q4

REPORT INFORMATION
  Report Type: 
  Country: None (occurrence: None)
  Receive Date: 20111221
  Receipt Date: 20111209
  Transmission Date: 20120403
  Serious: Yes (Disabling, Other)
  Sender: FDA-Public Use
  Company Number: US-ELI_LILLY_AND_COMPANY-US201112003323

PATIENT
  Sex: Male

DRUGS (12)
  1. OMEPRAZOLE [Concomitant]
     Dosage: UNK, QD
  2. GABAPENTIN [Concomitant]
     Dosage: 800 MG, QD
  3. HUMALOG [Suspect]
     Indication: DIABETES MELLITUS
     Dosage: UNK, BID
  4. HYDROCHLOROTHIAZIDE [Concomitant]
     Dosage: 12.5 MG, QD
  5. TRAZODONE HCL [Concomitant]
     Dosage: 300 MG, QD
  6. HUMULIN N [Suspect]
     Indication: DIABETES MELLITUS
     Dosage: 40 U, EACH MORNING
  7. AMLODIPINE [Concomitant]
     Dosage: 10 MG, QD
  8. CAPTOPRIL [Concomitant]
     Dosage: 100 MG, TID
  9. ZOCOR [Concomitant]
     Dosage: 20 MG, QD
  10. HUMULIN R [Suspect]
     Indication: DIABETES MELLITUS
     Dosage: 10 U, EACH MORNING
  11. HUMULIN N [Suspect]
     Dosage: 25 U, EACH EVENING
  12. AMBIEN [Concomitant]
     Dosage: 10 MG, QD

REACTIONS (4)
  - BLINDNESS [None]
  - RETINAL DETACHMENT [None]
  - BLOOD GLUCOSE FLUCTUATION [None]
  - BLOOD GLUCOSE ABNORMAL [None]
